FAERS Safety Report 23367218 (Version 1)
Quarter: 2024Q1

REPORT INFORMATION
  Report Type: Spontaneous
  Country: CH (occurrence: CH)
  Receive Date: 20240104
  Receipt Date: 20240104
  Transmission Date: 20240409
  Serious: Yes (Other)
  Sender: FDA-Public Use
  Company Number: None

PATIENT
  Age: 63 Year
  Sex: Female
  Weight: 87.1 kg

DRUGS (58)
  1. DIFLUCAN [Suspect]
     Active Substance: FLUCONAZOLE
     Dosage: 200 MG, DAILY
     Dates: start: 20231127, end: 20231127
  2. DIFLUCAN [Suspect]
     Active Substance: FLUCONAZOLE
     Dosage: 200 MG, DAILY
     Dates: start: 20231201, end: 20231201
  3. ROCEPHIN [Suspect]
     Active Substance: CEFTRIAXONE SODIUM
     Dosage: 2 G, DAILY
     Route: 042
     Dates: start: 20231109, end: 20231202
  4. KEFZOL [Suspect]
     Active Substance: CEFAZOLIN SODIUM
     Dosage: 2 G, 3X/DAY
     Route: 042
     Dates: start: 20231025, end: 20231026
  5. AMOXICILLIN\CLAVULANATE POTASSIUM [Suspect]
     Active Substance: AMOXICILLIN\CLAVULANATE POTASSIUM
     Dosage: 2.2 G, DAILY
     Route: 042
     Dates: start: 20231107, end: 20231107
  6. AMOXICILLIN\CLAVULANATE POTASSIUM [Suspect]
     Active Substance: AMOXICILLIN\CLAVULANATE POTASSIUM
     Dosage: 8.8 G, DAILY
     Route: 042
     Dates: start: 20231108, end: 20231108
  7. AMOXICILLIN\CLAVULANATE POTASSIUM [Suspect]
     Active Substance: AMOXICILLIN\CLAVULANATE POTASSIUM
     Dosage: 6.6 G, DAILY
     Route: 042
     Dates: start: 20231109, end: 20231109
  8. VANCOCIN [Suspect]
     Active Substance: VANCOMYCIN HYDROCHLORIDE
     Dosage: 500 MG, DAILY
     Route: 042
     Dates: start: 20231107, end: 20231107
  9. VANCOCIN [Suspect]
     Active Substance: VANCOMYCIN HYDROCHLORIDE
     Dosage: 1000 MG, DAILY
     Route: 042
     Dates: start: 20231108, end: 20231108
  10. VANCOCIN [Suspect]
     Active Substance: VANCOMYCIN HYDROCHLORIDE
     Dosage: 1500 MG, DAILY
     Route: 042
     Dates: start: 20231121, end: 20231121
  11. TORSEMIDE [Suspect]
     Active Substance: TORSEMIDE
     Dosage: 10 MG, DAILY
     Dates: start: 20231028
  12. LASIX [Suspect]
     Active Substance: FUROSEMIDE
     Dosage: 20 MG/ML
     Dates: start: 20231107, end: 20231116
  13. LASIX [Suspect]
     Active Substance: FUROSEMIDE
     Dosage: 20 MG/ML
     Dates: start: 20231122, end: 20231123
  14. IBUPROFEN [Suspect]
     Active Substance: IBUPROFEN
     Dosage: 400 MG
     Dates: start: 20231103, end: 20231122
  15. DAFALGAN [Suspect]
     Active Substance: ACETAMINOPHEN
     Dosage: UNK, 4X/DAY
     Dates: start: 20231122, end: 20231205
  16. METAMIZOLE [Suspect]
     Active Substance: METAMIZOLE
     Dosage: 500 MG, EVERY 3 HOURS
     Dates: start: 20231025, end: 20231205
  17. ONDANSETRON [Suspect]
     Active Substance: ONDANSETRON
     Dosage: UNK, AS NEEDED
     Route: 050
     Dates: start: 20231025, end: 20231027
  18. ONDANSETRON [Suspect]
     Active Substance: ONDANSETRON
     Dosage: UNK, AS NEEDED
     Route: 050
     Dates: start: 20231121
  19. ONDANSETRON [Suspect]
     Active Substance: ONDANSETRON
     Dosage: UNK, AS NEEDED
     Route: 048
     Dates: start: 20231027, end: 20231121
  20. FOLIC ACID [Concomitant]
     Active Substance: FOLIC ACID
     Dosage: 5 MG, DAILY
     Dates: start: 20231025
  21. CITALOPRAM HYDROBROMIDE [Concomitant]
     Active Substance: CITALOPRAM HYDROBROMIDE
     Dosage: 20 MG, DAILY
     Dates: start: 20231025
  22. NEBIVOLOL [Concomitant]
     Active Substance: NEBIVOLOL
     Dosage: 1.25 MG, DAILY
     Dates: start: 20231025
  23. VITAMIN D3 SPIRIG HC [Concomitant]
     Dosage: 800 IU
     Dates: start: 20231025
  24. XARELTO [Concomitant]
     Active Substance: RIVAROXABAN
     Indication: Venous thrombosis limb
     Dosage: 15 MG
     Dates: start: 2017, end: 20231025
  25. BURGERSTEIN ZINKGLUKONAT [Concomitant]
     Dosage: 30 MG, DAILY
     Dates: start: 20231030
  26. FRESUBIN PROTEIN ENERGY [Concomitant]
     Dosage: 100 ML, 2X/DAY
     Dates: start: 20231030
  27. MINERALS\VITAMINS [Concomitant]
     Active Substance: MINERALS\VITAMINS
     Dosage: UNK, DAILY
     Dates: start: 20231030
  28. NALOXONE HYDROCHLORIDE\OXYCODONE HYDROCHLORIDE [Concomitant]
     Active Substance: NALOXONE HYDROCHLORIDE\OXYCODONE HYDROCHLORIDE
     Dosage: UNK
     Dates: start: 20231026, end: 20231029
  29. NALOXONE HYDROCHLORIDE\OXYCODONE HYDROCHLORIDE [Concomitant]
     Active Substance: NALOXONE HYDROCHLORIDE\OXYCODONE HYDROCHLORIDE
     Dosage: UNK
     Dates: start: 20231101
  30. PANTOPRAZOLE SODIUM [Concomitant]
     Active Substance: PANTOPRAZOLE SODIUM
     Dosage: 20 MG, AS NEEDED
     Dates: start: 20231114
  31. PANTOPRAZOLE SODIUM [Concomitant]
     Active Substance: PANTOPRAZOLE SODIUM
     Dosage: 40 MG, DAILY
     Dates: start: 20231115
  32. ENOXAPARIN SODIUM [Concomitant]
     Active Substance: ENOXAPARIN SODIUM
     Dosage: 40 MG
     Dates: start: 20231026, end: 20231026
  33. ENOXAPARIN SODIUM [Concomitant]
     Active Substance: ENOXAPARIN SODIUM
     Dosage: 80 MG
     Dates: start: 20231027, end: 20231027
  34. ENOXAPARIN SODIUM [Concomitant]
     Active Substance: ENOXAPARIN SODIUM
     Dosage: 160 MG
     Dates: start: 20231103, end: 20231103
  35. ENOXAPARIN SODIUM [Concomitant]
     Active Substance: ENOXAPARIN SODIUM
     Dosage: 80 MG
     Dates: start: 20231104, end: 20231104
  36. ENOXAPARIN SODIUM [Concomitant]
     Active Substance: ENOXAPARIN SODIUM
     Dosage: 40 MG
     Dates: start: 20231107
  37. ENOXAPARIN SODIUM [Concomitant]
     Active Substance: ENOXAPARIN SODIUM
     Dosage: 60 MG
     Dates: start: 20231109
  38. OXYCODONE HYDROCHLORIDE [Concomitant]
     Active Substance: OXYCODONE HYDROCHLORIDE
     Dosage: 5 MG, AS NEEDED
     Dates: start: 20231025
  39. VALVERDE SCHLAF [Concomitant]
     Dosage: UNK, AS NEEDED
     Dates: start: 20231030
  40. QUETIAPINE FUMARATE [Concomitant]
     Active Substance: QUETIAPINE FUMARATE
     Dosage: UNK, AS NEEDED
     Dates: start: 20231031, end: 20231114
  41. REMERON [Concomitant]
     Active Substance: MIRTAZAPINE
     Dosage: 15 MG, AS NEEDED
     Dates: start: 20231114
  42. DROPERIDOL [Concomitant]
     Active Substance: DROPERIDOL
     Dosage: 1MG/2 ML AS NEEDED
     Dates: start: 20231025, end: 20231027
  43. DROPERIDOL [Concomitant]
     Active Substance: DROPERIDOL
     Dosage: 1MG/2 ML AS NEEDED
     Dates: start: 20231107
  44. DEXAMETHASONE [Concomitant]
     Active Substance: DEXAMETHASONE
     Dosage: 4 MG/ 1 ML AS NEEDED
     Dates: start: 20231025, end: 20231027
  45. DEXAMETHASONE [Concomitant]
     Active Substance: DEXAMETHASONE
     Dosage: 4 MG/ 1 ML AS NEEDED
     Dates: start: 20231121
  46. CLEMASTINE FUMARATE [Concomitant]
     Active Substance: CLEMASTINE FUMARATE
     Dosage: 2MG/2ML AS NEEDED
     Dates: start: 20231130
  47. BULBOID [Concomitant]
     Dosage: UNK, AS NEEDED
     Dates: start: 20231027
  48. PRONTOLAX [BISACODYL] [Concomitant]
     Dosage: 10 MG, AS NEEDED
     Dates: start: 20231027
  49. CLYSSIE [Concomitant]
     Dosage: 120 ML
  50. DUPHALAC [Concomitant]
     Active Substance: LACTULOSE
     Dosage: 30 ML
     Dates: start: 20231028, end: 20231029
  51. HEPARIN [Concomitant]
     Active Substance: HEPARIN SODIUM
     Dosage: 20000 E/ 48 ML
     Dates: start: 20231025, end: 20231104
  52. METHOTREXAT MEPHA [Concomitant]
     Indication: Rheumatoid arthritis
     Dosage: 17.5 MG, DAILY
     Dates: start: 20231030, end: 20231030
  53. HUMAN RED BLOOD CELL [Concomitant]
     Active Substance: HUMAN RED BLOOD CELL
     Dosage: UNK
     Dates: start: 20231122, end: 20231123
  54. ACTIMARIS [Concomitant]
     Dosage: UNK
     Dates: start: 20231101, end: 20231204
  55. SODIUM PICOSULFATE [Concomitant]
     Active Substance: SODIUM PICOSULFATE
     Dosage: 10 DROP
     Dates: start: 20231026, end: 20231204
  56. TRANSIPEG [MACROGOL 3350;POTASSIUM CHLORIDE;SODIUM BICARBONATE;SODIUM [Concomitant]
     Dosage: 1 DF (1 BAG)
     Dates: start: 20231026, end: 20231204
  57. MULTILIND HEILPAST [Concomitant]
     Dosage: UNK
     Dates: start: 20231127, end: 20231205
  58. AZTREONAM [Concomitant]
     Active Substance: AZTREONAM
     Dosage: UNK
     Dates: start: 20231202

REACTIONS (4)
  - Rash maculo-papular [Not Recovered/Not Resolved]
  - Rash [Not Recovered/Not Resolved]
  - Eosinophilia [Unknown]
  - Skin exfoliation [Unknown]

NARRATIVE: CASE EVENT DATE: 20231201
